FAERS Safety Report 9982420 (Version 2)
Quarter: 2014Q1

REPORT INFORMATION
  Report Type: Report from Study
  Country: PR (occurrence: PR)
  Receive Date: 20140307
  Receipt Date: 20140307
  Transmission Date: 20141002
  Serious: No
  Sender: FDA-Public Use
  Company Number: PR-ABBVIE-13P-131-1032206-00

PATIENT
  Sex: Male

DRUGS (4)
  1. HUMIRA [Suspect]
     Indication: ARTHRITIS
     Route: 058
     Dates: start: 201205
  2. RELAFEN [Concomitant]
     Indication: PROPHYLAXIS
     Route: 048
  3. RELAFEN [Concomitant]
     Indication: GASTRIC DISORDER
  4. FOLIC ACID [Concomitant]
     Indication: ARTHRITIS
     Route: 048

REACTIONS (1)
  - Lymphadenopathy [Not Recovered/Not Resolved]
